FAERS Safety Report 18570856 (Version 2)
Quarter: 2020Q4

REPORT INFORMATION
  Report Type: Spontaneous
  Country: CN (occurrence: CN)
  Receive Date: 20201202
  Receipt Date: 20201216
  Transmission Date: 20210114
  Serious: Yes (Other)
  Sender: FDA-Public Use
  Company Number: CN-ANIPHARMA-2020-CN-000355

PATIENT
  Sex: Female

DRUGS (4)
  1. PERTUZUMAB. [Concomitant]
     Active Substance: PERTUZUMAB
     Dosage: ONE INJECTION EACH 21 ? 28 DAYS FOR 1-2 YEARS
     Route: 042
  2. HERCEPTIN [Concomitant]
     Active Substance: TRASTUZUMAB
     Dosage: ONE INJECTION EACH 21 ? 28 DAYS FOR NEAR 1 YEAR
     Route: 042
  3. GOSERELIN [Concomitant]
     Active Substance: GOSERELIN
     Route: 065
  4. ARIMIDEX [Suspect]
     Active Substance: ANASTROZOLE
     Indication: TRIPLE POSITIVE BREAST CANCER
     Dosage: 1 DF DAILY
     Route: 048

REACTIONS (1)
  - Liver injury [Unknown]
